FAERS Safety Report 11024517 (Version 1)
Quarter: 2015Q2

REPORT INFORMATION
  Report Type: Spontaneous
  Country: MX (occurrence: MX)
  Receive Date: 20150414
  Receipt Date: 20150414
  Transmission Date: 20150821
  Serious: Yes (Other)
  Sender: FDA-Public Use
  Company Number: MX-JNJFOC-20150118775

PATIENT
  Age: 2 Year
  Sex: Female

DRUGS (3)
  1. AMOXIL [Concomitant]
     Active Substance: AMOXICILLIN
     Indication: ORAL MUCOSAL BLISTERING
     Route: 048
  2. DAKTARIN 2% [Suspect]
     Active Substance: MICONAZOLE NITRATE
     Route: 061
  3. DAKTARIN 2% [Suspect]
     Active Substance: MICONAZOLE NITRATE
     Indication: ORAL MUCOSAL BLISTERING
     Route: 061
     Dates: start: 2010

REACTIONS (3)
  - Drug prescribing error [Unknown]
  - Drug ineffective [Unknown]
  - Haemorrhage [Not Recovered/Not Resolved]

NARRATIVE: CASE EVENT DATE: 2010
